FAERS Safety Report 5904995-6 (Version None)
Quarter: 2008Q4

REPORT INFORMATION
  Report Type: 
  Country: None (occurrence: None)
  Receive Date: 20081001
  Receipt Date: 20080922
  Transmission Date: 20090506
  Serious: Yes (Hospitalization)
  Sender: FDA-Public Use
  Company Number: ES-SANOFI-SYNTHELABO-F01200801484

PATIENT
  Sex: Male
  Weight: 60 kg

DRUGS (10)
  1. EPOGEN [Concomitant]
     Indication: ANAEMIA
     Route: 058
     Dates: start: 20080519
  2. BOREA [Concomitant]
     Indication: ASTHENIA
     Route: 048
     Dates: start: 20080512
  3. DURAGESIC-100 [Concomitant]
     Indication: PAIN
     Route: 062
     Dates: start: 20080512
  4. PRIMPERAN TAB [Concomitant]
     Indication: PROPHYLAXIS
     Route: 048
     Dates: start: 20080317
  5. VENOFER [Concomitant]
     Indication: ANAEMIA
     Dosage: 1 AMP
     Route: 042
     Dates: start: 20080519
  6. DULCO-LAXO [Concomitant]
     Indication: CONSTIPATION
     Route: 048
     Dates: start: 20080317
  7. DUPHALAC [Concomitant]
     Indication: CONSTIPATION
     Route: 048
     Dates: start: 20080317
  8. OMEPRAZOLE [Concomitant]
     Indication: PROPHYLAXIS
     Route: 048
     Dates: start: 20080124
  9. DOCETAXEL [Suspect]
     Dosage: TOTAL DOSE 133.5 MG
     Route: 042
     Dates: start: 20080519, end: 20080519
  10. OXALIPLATIN [Suspect]
     Indication: GASTRIC CANCER
     Dosage: TOTAL DOSE 231.40 MG
     Route: 042
     Dates: start: 20080519, end: 20080519

REACTIONS (1)
  - GENERAL PHYSICAL HEALTH DETERIORATION [None]
